FAERS Safety Report 6016947-9 (Version None)
Quarter: 2008Q4

REPORT INFORMATION
  Report Type: 
  Country: None (occurrence: None)
  Receive Date: 20081219
  Receipt Date: 20081204
  Transmission Date: 20090506
  Serious: Yes (Death)
  Sender: FDA-Public Use
  Company Number: KV200800936

PATIENT
  Age: 74 Year
  Sex: Female

DRUGS (1)
  1. ISOSORBIDE MONONITRATE [Suspect]
     Indication: HYPERTENSION
     Dosage: 30 MG, QD, ORAL
     Route: 048
     Dates: end: 20081009

REACTIONS (5)
  - ANOREXIA [None]
  - DIARRHOEA [None]
  - FATIGUE [None]
  - PRODUCT QUALITY ISSUE [None]
  - VISION BLURRED [None]
